FAERS Safety Report 4515275-8 (Version None)
Quarter: 2004Q4

REPORT INFORMATION
  Report Type: 
  Country: None (occurrence: None)
  Receive Date: 20041201
  Receipt Date: 20041119
  Transmission Date: 20050328
  Serious: Yes (Life-Threatening)
  Sender: FDA-Public Use
  Company Number: GB-JNJFOC-20041105070

PATIENT
  Age: 27 Year
  Sex: Male
  Weight: 72.5 kg

DRUGS (3)
  1. REMICADE [Suspect]
     Indication: CROHN'S DISEASE
     Route: 042
  2. AZATHIOPRINE [Concomitant]
     Indication: CROHN'S DISEASE
     Route: 049
  3. ASACOL [Concomitant]
     Indication: CROHN'S DISEASE
     Route: 049

REACTIONS (1)
  - NON-HODGKIN'S LYMPHOMA [None]
